FAERS Safety Report 24562036 (Version 2)
Quarter: 2024Q4

REPORT INFORMATION
  Report Type: Spontaneous
  Country: CA (occurrence: CA)
  Receive Date: 20241029
  Receipt Date: 20241114
  Transmission Date: 20250115
  Serious: Yes (Other)
  Sender: GLAXOSMITHKLINE
  Company Number: CA-GLAXOSMITHKLINE INC-CA2024131835

PATIENT

DRUGS (10)
  1. TRELEGY ELLIPTA [Suspect]
     Active Substance: FLUTICASONE FUROATE\UMECLIDINIUM BROMIDE\VILANTEROL TRIFENATATE
     Indication: Chronic obstructive pulmonary disease
     Dosage: UNK
     Dates: start: 20240801, end: 20241015
  2. ATORVASTATIN [Concomitant]
     Active Substance: ATORVASTATIN
     Indication: Product used for unknown indication
     Dosage: 1 DF, QOD
     Dates: start: 20240801, end: 20241015
  3. ACETAMINOPHEN [Concomitant]
     Active Substance: ACETAMINOPHEN
     Indication: Chronic obstructive pulmonary disease
     Dosage: 1 - 2 TABLETS EVERY 4 HOUR, PRN MAX 12 TAB
     Dates: start: 20240801, end: 20241015
  4. ASPIRIN [Concomitant]
     Active Substance: ASPIRIN
     Indication: Chronic obstructive pulmonary disease
     Dosage: 1 DF, QD (1 TABLET 1 TIMME DAILY)
     Dates: start: 20240801, end: 20241015
  5. GABAPENTIN [Concomitant]
     Active Substance: GABAPENTIN
     Indication: Chronic obstructive pulmonary disease
     Dosage: 1 DF, TID
     Dates: start: 20240801, end: 20241015
  6. RIVAROXABAN [Concomitant]
     Active Substance: RIVAROXABAN
     Indication: Chronic obstructive pulmonary disease
     Dosage: 1 DF, BID, LU 539
     Dates: start: 20240801, end: 20241015
  7. ALBUTEROL SULFATE [Concomitant]
     Active Substance: ALBUTEROL SULFATE
     Indication: Chronic obstructive pulmonary disease
     Dosage: 4 PUFF(S), QD
     Dates: start: 20240801, end: 20241015
  8. RABEPRAZOLE [Concomitant]
     Active Substance: RABEPRAZOLE
     Indication: Chronic obstructive pulmonary disease
     Dosage: 20 MG, QD
     Dates: start: 20240801, end: 20241015
  9. CANDESARTAN [Concomitant]
     Active Substance: CANDESARTAN
     Indication: Chronic obstructive pulmonary disease
     Dosage: 8 MG, QD
     Dates: start: 20240801, end: 20241015
  10. OLODATEROL HYDROCHLORIDE\TIOTROPIUM BROMIDE MONOHYDRATE [Concomitant]
     Active Substance: OLODATEROL HYDROCHLORIDE\TIOTROPIUM BROMIDE MONOHYDRATE
     Indication: Chronic obstructive pulmonary disease
     Dosage: UNK UNK, QD FOR 30 DAYS
     Dates: start: 20240801, end: 20241015

REACTIONS (4)
  - Rash [Recovering/Resolving]
  - Generalised oedema [Recovering/Resolving]
  - Pruritus [Recovering/Resolving]
  - Rash pruritic [Recovering/Resolving]

NARRATIVE: CASE EVENT DATE: 20241003
